FAERS Safety Report 6130987-0 (Version None)
Quarter: 2009Q1

REPORT INFORMATION
  Report Type: 
  Country: None (occurrence: None)
  Receive Date: 20090325
  Receipt Date: 20090310
  Transmission Date: 20090719
  Serious: Yes (Other)
  Sender: FDA-Public Use
  Company Number: US-PFIZER INC-2008071444

PATIENT
  Sex: Male
  Weight: 79.1 kg

DRUGS (15)
  1. BLINDED *PLACEBO [Suspect]
     Indication: HYPERTONIC BLADDER
     Dosage: UNK
     Route: 048
     Dates: start: 20080521, end: 20080704
  2. BLINDED FESOTERODINE [Suspect]
     Indication: HYPERTONIC BLADDER
     Dosage: UNK
     Route: 048
     Dates: start: 20080521, end: 20080704
  3. TOLTERODINE TARTRATE [Suspect]
     Indication: HYPERTONIC BLADDER
     Dosage: UNK
     Route: 048
     Dates: start: 20080521, end: 20080704
  4. BLINDED *PLACEBO [Suspect]
     Dosage: UNK
     Route: 048
     Dates: start: 20080721, end: 20080820
  5. BLINDED FESOTERODINE [Suspect]
     Dosage: UNK
     Route: 048
     Dates: start: 20080721, end: 20080820
  6. TOLTERODINE TARTRATE [Suspect]
     Dosage: UNK
     Route: 048
     Dates: start: 20080721, end: 20080820
  7. LITHIUM [Suspect]
  8. FLOMAX [Concomitant]
     Dosage: UNK
     Route: 048
     Dates: start: 20050101
  9. PROSCAR [Concomitant]
     Dosage: UNK
     Route: 048
     Dates: start: 20010101
  10. LORAZEPAM [Concomitant]
     Dosage: UNK
     Route: 048
     Dates: start: 20040101
  11. VASOTEC [Concomitant]
     Dosage: UNK
     Route: 048
     Dates: start: 19970101
  12. PEPCID [Concomitant]
     Dosage: UNK
     Route: 048
     Dates: start: 19970101
  13. DEPAKOTE [Concomitant]
     Dosage: UNK
     Route: 048
     Dates: start: 20080508
  14. GEODON [Concomitant]
     Dosage: UNK
     Route: 048
     Dates: start: 20080624
  15. KEFLEX [Concomitant]
     Dosage: UNK
     Route: 048
     Dates: start: 20080625

REACTIONS (1)
  - THERAPEUTIC AGENT TOXICITY [None]
